FAERS Safety Report 8602247-7 (Version None)
Quarter: 2012Q3

REPORT INFORMATION
  Report Type: 
  Country: None (occurrence: None)
  Receive Date: 20120817
  Receipt Date: 20120803
  Transmission Date: 20120928
  Serious: Yes (Hospitalization)
  Sender: FDA-Public Use
  Company Number: BR-MYLANLABS-2012S1016326

PATIENT
  Age: 28 Year
  Sex: Male

DRUGS (13)
  1. GANCICLOVIR [Suspect]
     Indication: ANTIVIRAL PROPHYLAXIS
     Dosage: 5 MG/KG TWICE DAILY FOR 4 WEEKS; THEN REDUCED TO 5 MG/KG ON ALTERNATIVE DAYS
     Route: 042
     Dates: start: 20080101
  2. GANCICLOVIR [Suspect]
     Dosage: 5 MG/KG DAILY; THEN INCREASED TO 5 MG/KG TWICE DAILY
     Route: 042
     Dates: start: 20080101
  3. MYCOPHENOLATE MOFETIL [Suspect]
     Indication: IMMUNOSUPPRESSANT DRUG THERAPY
     Dosage: 1.5 MG/DAY
     Route: 065
     Dates: start: 20080301
  4. PREDNISONE TAB [Concomitant]
     Indication: IMMUNOSUPPRESSANT DRUG THERAPY
     Dosage: 30 MG/DAY
     Route: 065
     Dates: start: 20080301
  5. TACROLIMUS [Concomitant]
     Indication: IMMUNOSUPPRESSANT DRUG THERAPY
     Dosage: 8 MG/DAY
     Route: 065
     Dates: start: 20080301
  6. GANCICLOVIR [Suspect]
     Dosage: 5 MG/KG DAILY; THEN INCREASED TO 5 MG/KG TWICE DAILY
     Route: 042
     Dates: start: 20080101
  7. GANCICLOVIR [Suspect]
     Dosage: 1000MG TWICE DAILY
     Route: 048
     Dates: start: 20080101
  8. GANCICLOVIR [Suspect]
     Indication: CYTOMEGALOVIRUS INFECTION
     Dosage: 5 MG/KG TWICE DAILY FOR 4 WEEKS; THEN REDUCED TO 5 MG/KG ON ALTERNATIVE DAYS
     Route: 042
     Dates: start: 20080101
  9. GANCICLOVIR [Suspect]
     Dosage: 5 MG/KG ON ALTERNATIVE DAYS; THEN DISCONTINUED POST-TRANSPLANT WK6
     Route: 042
     Dates: start: 20080101
  10. GANCICLOVIR [Suspect]
     Dosage: 1000MG TWICE DAILY
     Route: 048
     Dates: start: 20080101
  11. GANCICLOVIR [Suspect]
     Dosage: 5 MG/KG TWICE DAILY; THEN SWITCHED TO ORAL MAINTENANCE 1000MG TWICE DAILY
     Route: 042
     Dates: start: 20080101
  12. GANCICLOVIR [Suspect]
     Dosage: 5 MG/KG ON ALTERNATIVE DAYS; THEN DISCONTINUED POST-TRANSPLANT WK6
     Route: 042
     Dates: start: 20080101
  13. GANCICLOVIR [Suspect]
     Dosage: 5 MG/KG TWICE DAILY; THEN SWITCHED TO ORAL MAINTENANCE 1000MG TWICE DAILY
     Route: 042
     Dates: start: 20080101

REACTIONS (4)
  - HEPATIC ENZYME INCREASED [None]
  - DRUG RESISTANCE [None]
  - ANAEMIA [None]
  - CYTOMEGALOVIRUS INFECTION [None]
